FAERS Safety Report 10105723 (Version 2)
Quarter: 2014Q2

REPORT INFORMATION
  Report Type: Other
  Country: US (occurrence: US)
  Receive Date: 20140424
  Receipt Date: 20140622
  Transmission Date: 20141212
  Serious: Yes (Death, Other)
  Sender: FDA-Public Use
  Company Number: US-GSKPPD-2014GSK001887

PATIENT
  Age: 70 Year
  Sex: Female

DRUGS (6)
  1. AVANDIA [Suspect]
     Indication: DIABETES MELLITUS
     Dosage: AVANDIA WAS NOT LISTED AMONG THE PATIENT^S ADMISSION/DISCHARGE RECORDS.
     Route: 048
  2. ASPIRIN [Concomitant]
     Route: 048
  3. AMARYL [Concomitant]
     Route: 048
  4. ZESTRIL [Concomitant]
     Route: 048
  5. DIGOXIN [Concomitant]
  6. ZOCOR [Concomitant]

REACTIONS (1)
  - Myocardial infarction [Fatal]
